FAERS Safety Report 14366783 (Version 1)
Quarter: 2018Q1

REPORT INFORMATION
  Report Type: Spontaneous
  Country: US (occurrence: US)
  Receive Date: 20180109
  Receipt Date: 20180109
  Transmission Date: 20180509
  Serious: No
  Sender: FDA-Public Use
  Company Number: US-BIOGEN-2018BI00506038

PATIENT
  Age: 50 Year
  Sex: Female

DRUGS (1)
  1. TECFIDERA [Suspect]
     Active Substance: DIMETHYL FUMARATE
     Indication: MULTIPLE SCLEROSIS
     Route: 065

REACTIONS (8)
  - Nausea [Unknown]
  - Bladder disorder [Unknown]
  - Amnesia [Unknown]
  - Fatigue [Unknown]
  - Multiple sclerosis [Unknown]
  - Balance disorder [Unknown]
  - Motor dysfunction [Unknown]
  - Temperature intolerance [Unknown]
